FAERS Safety Report 9424061 (Version 1)
Quarter: 2013Q3

REPORT INFORMATION
  Report Type: Spontaneous
  Country: US (occurrence: US)
  Receive Date: 20130729
  Receipt Date: 20130729
  Transmission Date: 20140515
  Serious: No
  Sender: FDA-Public Use
  Company Number: US-009507513-1307USA009865

PATIENT
  Sex: Male

DRUGS (2)
  1. JANUVIA [Suspect]
     Dosage: 100 MG, BID
     Route: 048
     Dates: start: 201201
  2. JANUVIA [Suspect]
     Dosage: 100 MG, BID
     Route: 048

REACTIONS (4)
  - Drug dose omission [Unknown]
  - No adverse event [Unknown]
  - Overdose [Unknown]
  - Inappropriate schedule of drug administration [Unknown]
